FAERS Safety Report 8130376-3 (Version None)
Quarter: 2012Q1

REPORT INFORMATION
  Report Type: 
  Country: None (occurrence: None)
  Receive Date: 20120210
  Receipt Date: 20120208
  Transmission Date: 20120608
  Serious: Yes (Hospitalization, Other)
  Sender: FDA-Public Use
  Company Number: PHFR2011GB04432

PATIENT
  Sex: Female

DRUGS (8)
  1. OMEPRAZOLE [Concomitant]
     Dosage: 20 MG, UNK
     Route: 048
  2. LACTULOSE [Concomitant]
     Indication: CONSTIPATION
     Dosage: 10 ML, BID
     Route: 048
  3. PHENOXYMETHYLPENICILLIN [Concomitant]
     Dosage: 250 MG, BID
     Route: 048
  4. EXJADE [Suspect]
     Indication: IRON OVERLOAD
     Dosage: 1750 MG, UNK
     Route: 065
  5. ACETAMINOPHEN [Concomitant]
     Dosage: 500-1000 MG, FOUR TIMES A DAY WHEN REQUIRED
     Route: 048
  6. FOLIC ACID [Concomitant]
     Dosage: 2.5 MG, UNK
     Route: 048
  7. EXJADE [Suspect]
     Indication: SICKLE CELL ANAEMIA
     Dosage: 1500 MG, EVERY MORNING
     Route: 048
  8. DESFERRIOXAMINE MESYLATE [Suspect]

REACTIONS (21)
  - LIVER FUNCTION TEST ABNORMAL [None]
  - C-REACTIVE PROTEIN INCREASED [None]
  - GASTRITIS [None]
  - SERUM FERRITIN INCREASED [None]
  - ABDOMINAL TENDERNESS [None]
  - RASH [None]
  - RETICULOCYTE COUNT ABNORMAL [None]
  - FOETAL HAEMOGLOBIN INCREASED [None]
  - DEHYDRATION [None]
  - BLOOD BILIRUBIN ABNORMAL [None]
  - CONSTIPATION [None]
  - ABDOMINAL DISCOMFORT [None]
  - VOMITING [None]
  - DECREASED APPETITE [None]
  - IRON OVERLOAD [None]
  - SICKLE CELL ANAEMIA WITH CRISIS [None]
  - NAUSEA [None]
  - WHITE BLOOD CELL COUNT INCREASED [None]
  - DOUBLE HETEROZYGOUS SICKLING DISORDERS [None]
  - LISTLESS [None]
  - ABDOMINAL PAIN [None]
